FAERS Safety Report 23567262 (Version 1)
Quarter: 2024Q1

REPORT INFORMATION
  Report Type: Spontaneous
  Country: FR (occurrence: FR)
  Receive Date: 20240226
  Receipt Date: 20240226
  Transmission Date: 20240409
  Serious: Yes (Hospitalization)
  Sender: FDA-Public Use
  Company Number: None

PATIENT
  Age: 15 Year
  Sex: Female
  Weight: 81 kg

DRUGS (5)
  1. VINCRISTINE SULFATE [Suspect]
     Active Substance: VINCRISTINE SULFATE
     Indication: Hodgkin^s disease
     Dosage: D1, 21D CYCLE
     Route: 042
     Dates: start: 20231127, end: 20231127
  2. CYCLOPHOSPHAMIDE [Suspect]
     Active Substance: CYCLOPHOSPHAMIDE
     Indication: Hodgkin^s disease
     Dosage: D1 AND D2, 21D CYCLE
     Route: 042
     Dates: start: 20231127, end: 20231128
  3. FLUOXETINE HYDROCHLORIDE [Suspect]
     Active Substance: FLUOXETINE HYDROCHLORIDE
     Indication: Depression
     Route: 048
     Dates: start: 20220830, end: 20231205
  4. DOXORUBICIN HYDROCHLORIDE [Suspect]
     Active Substance: DOXORUBICIN HYDROCHLORIDE
     Indication: Hodgkin^s disease
     Dosage: D1, 21D CYCLE
     Route: 042
     Dates: start: 20231127, end: 20231127
  5. DACARBAZINE [Suspect]
     Active Substance: DACARBAZINE
     Indication: Hodgkin^s disease
     Dosage: D1, D2, D3, 21D CYCLE
     Route: 042
     Dates: start: 20231127, end: 20231130

REACTIONS (5)
  - Postural orthostatic tachycardia syndrome [Recovering/Resolving]
  - Abdominal pain [Recovered/Resolved]
  - Electrocardiogram QT prolonged [Recovered/Resolved]
  - Orthostatic hypotension [Recovering/Resolving]
  - Autonomic nervous system imbalance [Recovering/Resolving]

NARRATIVE: CASE EVENT DATE: 20231205
